FAERS Safety Report 10385494 (Version 3)
Quarter: 2014Q4

REPORT INFORMATION
  Report Type: Report from Study
  Country: KR (occurrence: KR)
  Receive Date: 20140814
  Receipt Date: 20141016
  Transmission Date: 20150528
  Serious: Yes (Death, Hospitalization, Other)
  Sender: FDA-Public Use
  Company Number: KR-GLAXOSMITHKLINE-B1023554A

PATIENT
  Age: 66 Year
  Sex: Male
  Weight: 63 kg

DRUGS (24)
  1. DUROGESIC [Concomitant]
     Active Substance: FENTANYL
     Indication: PAIN
     Dosage: 04AUG14-05AUG14 150MCG EVERYDAY.
     Dates: start: 20140709, end: 20140730
  2. TRITTICO [Concomitant]
     Active Substance: TRAZODONE HYDROCHLORIDE
     Indication: INSOMNIA
     Dosage: 25 MG, QD
     Route: 048
     Dates: start: 20140718, end: 20140721
  3. MEDILAC DS [Concomitant]
     Indication: DIARRHOEA
     Dosage: 750 MG, QD
     Route: 048
     Dates: start: 20140508, end: 20140803
  4. PANTOLOC [Concomitant]
     Active Substance: PANTOPRAZOLE SODIUM
     Indication: RADIATION OESOPHAGITIS
     Dosage: 09JUL2014 TO 03 AUG2014 40MG EVERYDAY06AUG2014 TO 06AUG2014 80MG EVERYDAY
     Route: 048
     Dates: start: 20140617, end: 20140806
  5. CHLORHEXIDINE GLUCONATE. [Concomitant]
     Active Substance: CHLORHEXIDINE GLUCONATE
     Indication: PHARYNGITIS
     Route: 002
     Dates: start: 20140603, end: 20140806
  6. MOTILITONE [Concomitant]
     Active Substance: HERBALS
     Indication: DYSPEPSIA
     Dosage: 30 MG, TID
     Route: 048
     Dates: start: 20140707, end: 20140802
  7. SPIRIVA [Concomitant]
     Active Substance: TIOTROPIUM BROMIDE MONOHYDRATE
     Indication: DYSPNOEA
     Dosage: 18 UNK, QD
     Route: 055
     Dates: start: 20140616, end: 20140806
  8. STILNOX [Concomitant]
     Active Substance: ZOLPIDEM TARTRATE
     Indication: INSOMNIA
     Dosage: 6.25 MG, QD
     Route: 048
     Dates: start: 20140715, end: 20140721
  9. TANTUM [Concomitant]
     Active Substance: BENZYDAMINE HYDROCHLORIDE
     Indication: PHARYNGITIS
     Dates: start: 20140609, end: 20140806
  10. STILLEN [Concomitant]
     Indication: CHRONIC GASTRITIS
     Dosage: 60 MG, TID
     Route: 048
     Dates: start: 20140707, end: 20140802
  11. ERDOS [Concomitant]
     Indication: DYSPNOEA
     Dosage: 300 MG, TID
     Route: 048
     Dates: start: 20140528, end: 20140802
  12. MEGACE [Concomitant]
     Active Substance: MEGESTROL ACETATE
     Indication: CACHEXIA
     Dosage: 20 ML, QD
     Route: 048
     Dates: start: 20140606, end: 20140802
  13. COUMADIN [Concomitant]
     Active Substance: WARFARIN SODIUM
     Indication: PULMONARY EMBOLISM
     Dosage: 2.5 MG, QD
     Route: 048
     Dates: start: 20140624, end: 20140804
  14. RIVOTRIL [Concomitant]
     Active Substance: CLONAZEPAM
     Indication: INSOMNIA
     Dosage: 10 MG, QD
     Route: 048
     Dates: start: 20140721, end: 20140721
  15. DIGOXIN. [Concomitant]
     Active Substance: DIGOXIN
     Indication: TACHYCARDIA
     Dosage: 0.5 MG, QD
     Route: 042
     Dates: start: 20140806, end: 20140806
  16. VENTOLIN [Concomitant]
     Active Substance: ALBUTEROL SULFATE
     Indication: DYSPNOEA
     Route: 055
     Dates: start: 20140616, end: 20140806
  17. TOPOTECAN HYDROCHLORIDE. [Suspect]
     Active Substance: TOPOTECAN HYDROCHLORIDE
     Indication: SMALL CELL LUNG CANCER
     Dosage: 3.8 MG, QD
     Route: 048
     Dates: start: 20140721, end: 20140725
  18. ATORVA [Concomitant]
     Indication: CORONARY ARTERY DISEASE
     Dosage: 20 MG, QD
     Route: 048
     Dates: start: 20130328, end: 20140802
  19. SIGMART [Concomitant]
     Active Substance: NICORANDIL
     Indication: CHEST PAIN
     Dosage: 10 MG, QD
     Route: 048
     Dates: start: 20130328, end: 20140802
  20. JURNISTA [Concomitant]
     Active Substance: HYDROMORPHONE HYDROCHLORIDE
     Indication: PAIN
     Dosage: 32 MG, QD
     Route: 048
     Dates: start: 20140530, end: 20140802
  21. ULTIVA [Concomitant]
     Active Substance: REMIFENTANIL HYDROCHLORIDE
     Indication: ABDOMINAL PAIN
     Dosage: 3 MG, QD
     Route: 042
     Dates: start: 20140806, end: 20140806
  22. ISOSORBIDE DINITRATE. [Concomitant]
     Active Substance: ISOSORBIDE DINITRATE
     Indication: CHEST PAIN
     Dosage: 80 MG, QD
     Route: 048
     Dates: start: 20131022, end: 20140802
  23. TRIDOL [Concomitant]
     Indication: ABDOMINAL PAIN
     Dosage: 01AUG14 TO 03AUG14 100PRN IV
     Route: 042
     Dates: start: 20140730, end: 20140805
  24. MUCOSTA [Concomitant]
     Active Substance: REBAMIPIDE
     Indication: CHRONIC GASTRITIS
     Dosage: 100 MG, TID
     Route: 048
     Dates: start: 20140617, end: 20140802

REACTIONS (5)
  - Septic shock [Not Recovered/Not Resolved]
  - Infarction [Not Recovered/Not Resolved]
  - Appendicitis [Not Recovered/Not Resolved]
  - Jejunal perforation [Not Recovered/Not Resolved]
  - Febrile neutropenia [Fatal]

NARRATIVE: CASE EVENT DATE: 20140730
